FAERS Safety Report 5876968-3 (Version None)
Quarter: 2008Q3

REPORT INFORMATION
  Report Type: 
  Country: None (occurrence: None)
  Receive Date: 20080910
  Receipt Date: 20080827
  Transmission Date: 20090109
  Serious: Yes (Other)
  Sender: FDA-Public Use
  Company Number: PHHY2008JP19530

PATIENT

DRUGS (2)
  1. DIOVAN [Suspect]
     Indication: ESSENTIAL HYPERTENSION
  2. AMLODIPINE BESYLATE [Suspect]
     Indication: ESSENTIAL HYPERTENSION

REACTIONS (1)
  - CEREBRAL INFARCTION [None]
